FAERS Safety Report 5285940-6 (Version None)
Quarter: 2007Q2

REPORT INFORMATION
  Report Type: 
  Country: None (occurrence: None)
  Receive Date: 20070404
  Receipt Date: 20070322
  Transmission Date: 20071010
  Serious: Yes (Other)
  Sender: FDA-Public Use
  Company Number: PHBS2007AR05365

PATIENT
  Age: 43 Year
  Sex: Male

DRUGS (2)
  1. SANDOSTATIN LAR [Suspect]
     Indication: ACROMEGALY
     Dosage: 20 MG, QD
     Route: 065
     Dates: start: 20051001
  2. SANDOSTATIN LAR [Suspect]
     Dosage: 20 MG, QD
     Route: 065
     Dates: start: 20061001

REACTIONS (1)
  - BILIARY DILATATION [None]
